FAERS Safety Report 12320351 (Version 3)
Quarter: 2016Q3

REPORT INFORMATION
  Report Type: Spontaneous
  Country: US (occurrence: US)
  Receive Date: 20160501
  Receipt Date: 20160923
  Transmission Date: 20161109
  Serious: No
  Sender: FDA-Public Use
  Company Number: PHEH2016US010635

PATIENT
  Age: 34 Year
  Sex: Female
  Weight: 63.39 kg

DRUGS (1)
  1. ZOFRAN [Suspect]
     Active Substance: ONDANSETRON HYDROCHLORIDE
     Indication: VOMITING IN PREGNANCY
     Dosage: 4 MG, UNK
     Route: 048
     Dates: start: 199803

REACTIONS (6)
  - Pain [Unknown]
  - Emotional distress [Unknown]
  - Product use issue [Unknown]
  - Anxiety [Unknown]
  - Injury [Unknown]
  - Maternal exposure during pregnancy [Unknown]

NARRATIVE: CASE EVENT DATE: 199803
